FAERS Safety Report 12995947 (Version 1)
Quarter: 2016Q4

REPORT INFORMATION
  Report Type: Spontaneous
  Country: US (occurrence: US)
  Receive Date: 20161202
  Receipt Date: 20161202
  Transmission Date: 20170207
  Serious: No
  Sender: FDA-Public Use
  Company Number: US-ACTELION-A-NJ2016-146341

PATIENT
  Age: 65 Year
  Sex: Female

DRUGS (11)
  1. VITAMIN C [Concomitant]
     Active Substance: ASCORBIC ACID
  2. CINNAMON. [Concomitant]
     Active Substance: CINNAMON
  3. HUMALOG [Concomitant]
     Active Substance: INSULIN LISPRO
  4. NORVASC [Concomitant]
     Active Substance: AMLODIPINE BESYLATE
  5. ASPIRIN. [Concomitant]
     Active Substance: ASPIRIN
  6. LOSARTAN POTASSIUM. [Concomitant]
     Active Substance: LOSARTAN POTASSIUM
  7. VALCHLOR [Suspect]
     Active Substance: MECHLORETHAMINE
     Indication: MYCOSIS FUNGOIDES
     Dosage: UNK, QD
     Route: 061
     Dates: start: 20160901
  8. TOPROL XL [Concomitant]
     Active Substance: METOPROLOL SUCCINATE
  9. COQ 10 [Concomitant]
     Active Substance: UBIDECARENONE
  10. LEVEMIR [Concomitant]
     Active Substance: INSULIN DETEMIR
  11. VITAMIN B12 [Concomitant]
     Active Substance: CYANOCOBALAMIN

REACTIONS (3)
  - Pruritus [Unknown]
  - Papule [Unknown]
  - Fungal skin infection [Unknown]
